FAERS Safety Report 5563866-8 (Version None)
Quarter: 2007Q4

REPORT INFORMATION
  Report Type: 
  Country: None (occurrence: None)
  Receive Date: 20071217
  Receipt Date: 20071008
  Transmission Date: 20080405
  Serious: No
  Sender: FDA-Public Use
  Company Number: US-ASTRAZENECA-2007UW23341

PATIENT
  Age: 79 Year
  Sex: Female
  Weight: 55.3 kg

DRUGS (7)
  1. CRESTOR [Suspect]
     Indication: BLOOD CHOLESTEROL INCREASED
     Route: 048
     Dates: start: 20061001
  2. PLAVIX [Concomitant]
  3. NORVASC [Concomitant]
  4. SYNTHROID [Concomitant]
  5. IRON [Concomitant]
  6. ASPIRIN [Concomitant]
  7. VITAMINS [Concomitant]

REACTIONS (4)
  - DYSPNOEA [None]
  - MUSCLE TIGHTNESS [None]
  - SKIN DISCOLOURATION [None]
  - SKIN REACTION [None]
